FAERS Safety Report 11803857 (Version 3)
Quarter: 2016Q1

REPORT INFORMATION
  Report Type: Spontaneous
  Country: JP (occurrence: JP)
  Receive Date: 20151204
  Receipt Date: 20160222
  Transmission Date: 20160525
  Serious: Yes (Hospitalization, Disabling)
  Sender: FDA-Public Use
  Company Number: PHJP2015JP018535

PATIENT
  Age: 46 Year
  Sex: Male
  Weight: 72 kg

DRUGS (9)
  1. CYLOCIDE [Concomitant]
     Active Substance: CYTARABINE
     Dosage: 130 MG, UNK
     Route: 041
     Dates: start: 20150922
  2. ARRANON [Suspect]
     Active Substance: NELARABINE
     Dosage: 2700 MG, QD
     Route: 041
     Dates: start: 20150917, end: 20150917
  3. ONCOVIN [Suspect]
     Active Substance: VINCRISTINE SULFATE
     Indication: ACUTE LYMPHOCYTIC LEUKAEMIA
     Dosage: 2 MG, UNK
     Route: 041
     Dates: start: 20150818, end: 20150901
  4. DOXORUBICIN [Concomitant]
     Active Substance: DOXORUBICIN
     Indication: ACUTE LYMPHOCYTIC LEUKAEMIA
     Dosage: 50 MG, UNK
     Route: 041
     Dates: start: 20150818, end: 20150901
  5. ARRANON [Suspect]
     Active Substance: NELARABINE
     Indication: ACUTE LYMPHOCYTIC LEUKAEMIA
     Dosage: 2700 MG, QD
     Route: 041
     Dates: start: 20150915, end: 20150915
  6. DEXART [Concomitant]
     Active Substance: DEXAMETHASONE SODIUM PHOSPHATE
     Indication: ACUTE LYMPHOCYTIC LEUKAEMIA
     Dosage: 3.3 MG, UNK
     Route: 024
     Dates: start: 20150815
  7. ARRANON [Suspect]
     Active Substance: NELARABINE
     Dosage: 2700 MG, QD
     Route: 041
     Dates: start: 20150919, end: 20150919
  8. CYLOCIDE [Concomitant]
     Active Substance: CYTARABINE
     Indication: ACUTE LYMPHOCYTIC LEUKAEMIA
     Dosage: 40 MG, UNK
     Route: 024
     Dates: start: 20150818
  9. METHOTREXATE [Concomitant]
     Active Substance: METHOTREXATE
     Indication: ACUTE LYMPHOCYTIC LEUKAEMIA
     Dosage: 15 MG, UNK
     Route: 024
     Dates: start: 20150818

REACTIONS (7)
  - Neuropathy peripheral [Not Recovered/Not Resolved]
  - Anorectal disorder [Not Recovered/Not Resolved]
  - Dyschezia [Unknown]
  - Motor dysfunction [Unknown]
  - Dysuria [Unknown]
  - Bladder disorder [Not Recovered/Not Resolved]
  - Gait disturbance [Unknown]

NARRATIVE: CASE EVENT DATE: 20151016
